FAERS Safety Report 9531649 (Version 1)
Quarter: 2013Q2

REPORT INFORMATION
  Report Type: Spontaneous
  Country: US (occurrence: None)
  Receive Date: 20130503
  Receipt Date: 20130503
  Transmission Date: 20140414
  Serious: Yes (Other)
  Sender: FDA-Public Use
  Company Number: 1000041698

PATIENT
  Age: 72 Year
  Sex: Female

DRUGS (6)
  1. DALIRESP (ROFLUMILAST) (500 MICROGRAM, TABLETS) [Suspect]
     Indication: CHRONIC OBSTRUCTIVE PULMONARY DISEASE
     Dosage: 500 MCG EVERY OTHER DAY (500 MCG, 1 IN 2 D), ORAL
     Route: 048
     Dates: start: 20121204, end: 20130107
  2. SYMBICORT (BUDESONIDE W/FORMOTEROL FUMARATE) ( BUESONIDE W/ FORMOTEROL FUMARATE) [Concomitant]
  3. SPIRIVA (TIOTROPIUM BROMIDE) (TIOTROPIUM BROMIDE) [Concomitant]
  4. DETROL LA (TOLTERODINE L-TARTRATE) (TOLTERODINE L-TARTRATE) [Concomitant]
  5. VENTOLIN (ALBUTEROL) (ALBUTEROL) [Concomitant]
  6. SINGULAIR (MONTELUKAST SODIUM) (MONTELUKAST SODIUM) [Concomitant]

REACTIONS (5)
  - Insomnia [None]
  - Fatigue [None]
  - Dyspnoea [None]
  - Headache [None]
  - Back pain [None]
